FAERS Safety Report 20967628 (Version 4)
Quarter: 2022Q3

REPORT INFORMATION
  Report Type: Spontaneous
  Country: NO (occurrence: NO)
  Receive Date: 20220616
  Receipt Date: 20220810
  Transmission Date: 20221027
  Serious: Yes (Life-Threatening, Hospitalization, Disabling, Other)
  Sender: FDA-Public Use
  Company Number: NO-ADVANZ PHARMA-202206003560

PATIENT

DRUGS (5)
  1. HYDROXYCHLOROQUINE SULFATE [Suspect]
     Active Substance: HYDROXYCHLOROQUINE SULFATE
     Indication: Arthritis
     Dosage: 400 MG (HAD BEEN ON THIS FOR 7 YEARS)
     Route: 048
     Dates: start: 2015, end: 2019
  2. HYDROXYCHLOROQUINE SULFATE [Suspect]
     Active Substance: HYDROXYCHLOROQUINE SULFATE
     Dosage: 200 MG
     Route: 048
     Dates: start: 2019
  3. PREDNISOLONE [Concomitant]
     Active Substance: PREDNISOLONE
     Dosage: UNK
     Route: 065
  4. ACETAMINOPHEN [Concomitant]
     Active Substance: ACETAMINOPHEN
     Dosage: UNK
     Route: 065
  5. PFIZER-BIONTECH COVID-19 VACCINE [Concomitant]
     Active Substance: TOZINAMERAN
     Dosage: UNK
     Route: 065
     Dates: start: 202104, end: 202104

REACTIONS (48)
  - Mast cell activation syndrome [Not Recovered/Not Resolved]
  - Anaphylactic reaction [Not Recovered/Not Resolved]
  - Pharyngeal swelling [Not Recovered/Not Resolved]
  - Eye pain [Not Recovered/Not Resolved]
  - Productive cough [Not Recovered/Not Resolved]
  - Dyspnoea [Not Recovered/Not Resolved]
  - Gait disturbance [Unknown]
  - Wheelchair user [Unknown]
  - Facial paralysis [Unknown]
  - Bradycardia [Unknown]
  - Seizure [Unknown]
  - Illness [Unknown]
  - Reaction to excipient [Unknown]
  - Heart rate decreased [Unknown]
  - Histamine intolerance [Unknown]
  - Paraesthesia [Recovered/Resolved]
  - Urinary tract infection [Unknown]
  - Tendonitis [Unknown]
  - Plantar fasciitis [Unknown]
  - Insomnia [Unknown]
  - Endometriosis [Unknown]
  - Neuralgia [Unknown]
  - Cognitive disorder [Unknown]
  - Tendon rupture [Unknown]
  - Exercise tolerance decreased [Unknown]
  - Feeling abnormal [Unknown]
  - Dry eye [Unknown]
  - Eye inflammation [Unknown]
  - Oropharyngeal pain [Unknown]
  - Upper-airway cough syndrome [Unknown]
  - Seborrhoea [Unknown]
  - Depression [Unknown]
  - Asthenia [Unknown]
  - Migraine [Recovered/Resolved]
  - Hypoglycaemia [Recovered/Resolved]
  - Pallor [Recovered/Resolved]
  - Dizziness [Recovered/Resolved]
  - Nausea [Recovered/Resolved]
  - Dysarthria [Recovered/Resolved]
  - Confusional state [Recovered/Resolved]
  - Nausea [Recovered/Resolved]
  - Rash pustular [Unknown]
  - Tinnitus [Recovering/Resolving]
  - Headache [Recovered/Resolved]
  - Fatigue [Unknown]
  - Pruritus [Unknown]
  - Diarrhoea [Unknown]
  - Product use in unapproved indication [Unknown]

NARRATIVE: CASE EVENT DATE: 20150101
